FAERS Safety Report 25842547 (Version 1)
Quarter: 2025Q3

REPORT INFORMATION
  Report Type: Spontaneous
  Country: US (occurrence: US)
  Receive Date: 20250924
  Receipt Date: 20250924
  Transmission Date: 20251021
  Serious: No
  Sender: DR REDDYS
  Company Number: US-DRL-USA-USA/2025/09/014374

PATIENT
  Age: 74 Year
  Sex: Female

DRUGS (1)
  1. DISOPYRAMIDE [Suspect]
     Active Substance: DISOPYRAMIDE
     Indication: Left ventricle outflow tract obstruction
     Dosage: 150 MG 3 TIMES DAILY

REACTIONS (2)
  - Bundle branch block left [Unknown]
  - Product use in unapproved indication [Recovered/Resolved]
